FAERS Safety Report 7103153-X (Version None)
Quarter: 2010Q4

REPORT INFORMATION
  Report Type: 
  Country: None (occurrence: None)
  Receive Date: 20101115
  Receipt Date: 20080131
  Transmission Date: 20110411
  Serious: No
  Sender: FDA-Public Use
  Company Number: US-KINGPHARMUSA00001-K200800158

PATIENT
  Age: 72 Year
  Sex: Male

DRUGS (8)
  1. ALTACE [Suspect]
     Indication: HYPERTENSION
     Dosage: 2.5 MG, QD
     Route: 048
     Dates: start: 20010101, end: 20030101
  2. ALTACE [Suspect]
     Dosage: 5 MG, QD
     Route: 048
     Dates: start: 20030101, end: 20071201
  3. ALTACE [Suspect]
     Dosage: 10 MG, QD
     Route: 048
     Dates: start: 20071201
  4. PREVACID [Concomitant]
     Indication: GASTROOESOPHAGEAL REFLUX DISEASE
     Dosage: 30 MG, QOD
  5. TENORMIN [Concomitant]
     Indication: BLOOD PRESSURE
     Dosage: 25 MG, QD
  6. IMDUR [Concomitant]
     Indication: ANGINA PECTORIS
     Dosage: 60 MG, QD
  7. ZOCOR [Concomitant]
     Indication: BLOOD CHOLESTEROL INCREASED
     Dosage: 40 MG, QD
  8. ASPIRIN [Concomitant]
     Indication: CARDIAC DISORDER
     Dosage: 1 UNK, QD
     Route: 048

REACTIONS (4)
  - CONSTIPATION [None]
  - COUGH [None]
  - FATIGUE [None]
  - GASTROOESOPHAGEAL REFLUX DISEASE [None]
